FAERS Safety Report 22361600 (Version 1)
Quarter: 2023Q2

REPORT INFORMATION
  Report Type: Spontaneous
  Country: AR (occurrence: AR)
  Receive Date: 20230524
  Receipt Date: 20230524
  Transmission Date: 20230722
  Serious: Yes (Other)
  Sender: FDA-Public Use
  Company Number: AR-PFIZER INC-PV202300072580

PATIENT
  Age: 76 Year
  Sex: Female

DRUGS (1)
  1. IBRANCE [Suspect]
     Active Substance: PALBOCICLIB
     Dosage: UNK

REACTIONS (9)
  - Retinal infarction [Unknown]
  - Hypertension [Recovering/Resolving]
  - Anaemia [Unknown]
  - Feeling cold [Unknown]
  - Decreased appetite [Unknown]
  - Visual impairment [Unknown]
  - Vision blurred [Unknown]
  - Back pain [Unknown]
  - Lacrimation increased [Unknown]
